FAERS Safety Report 20677442 (Version 4)
Quarter: 2022Q2

REPORT INFORMATION
  Report Type: Spontaneous
  Country: US (occurrence: US)
  Receive Date: 20220406
  Receipt Date: 20220418
  Transmission Date: 20220720
  Serious: No
  Sender: FDA-Public Use
  Company Number: US-JNJFOC-20220347937

PATIENT
  Age: 43 Year
  Sex: Female
  Weight: 61.290 kg

DRUGS (1)
  1. TREMFYA [Suspect]
     Active Substance: GUSELKUMAB
     Indication: Psoriasis
     Route: 065
     Dates: start: 20220218

REACTIONS (4)
  - Device issue [Unknown]
  - Accidental exposure to product [Unknown]
  - Product dose omission issue [Unknown]
  - Psoriasis [Unknown]

NARRATIVE: CASE EVENT DATE: 20220301
